FAERS Safety Report 13240135 (Version 1)
Quarter: 2017Q1

REPORT INFORMATION
  Report Type: Spontaneous
  Country: US (occurrence: US)
  Receive Date: 20170216
  Receipt Date: 20170216
  Transmission Date: 20170428
  Serious: Yes (Life-Threatening, Other)
  Sender: FDA-Public Use
  Company Number: US-GLAXOSMITHKLINE-US2017021782

PATIENT
  Sex: Male

DRUGS (1)
  1. ADVAIR DISKUS [Suspect]
     Active Substance: FLUTICASONE PROPIONATE\SALMETEROL XINAFOATE
     Indication: ASTHMA
     Dosage: 1 PUFF(S), BID
     Route: 055
     Dates: end: 201701

REACTIONS (4)
  - Gastrointestinal candidiasis [Recovering/Resolving]
  - Oesophageal candidiasis [Recovering/Resolving]
  - Oral candidiasis [Recovering/Resolving]
  - Bronchospasm [Recovered/Resolved]
